FAERS Safety Report 18046257 (Version 1)
Quarter: 2020Q3

REPORT INFORMATION
  Report Type: Spontaneous
  Country: US (occurrence: US)
  Receive Date: 20200720
  Receipt Date: 20200720
  Transmission Date: 20201103
  Serious: Yes (Other)
  Sender: FDA-Public Use
  Company Number: US-ALKERMES INC.-ALK-2020-002902

PATIENT
  Age: 31 Year
  Sex: Male

DRUGS (7)
  1. HALDOL [Concomitant]
     Active Substance: HALOPERIDOL
     Indication: PRODUCT USED FOR UNKNOWN INDICATION
     Dosage: UNK
     Route: 048
  2. ARISTADA [Suspect]
     Active Substance: ARIPIPRAZOLE LAUROXIL
     Dosage: 1064 MILLIGRAM, QMO
     Route: 030
     Dates: start: 20200512, end: 20200512
  3. ARISTADA [Suspect]
     Active Substance: ARIPIPRAZOLE LAUROXIL
     Dosage: 882 MILLIGRAM, QMO
     Route: 030
     Dates: start: 201811, end: 201811
  4. ARISTADA [Suspect]
     Active Substance: ARIPIPRAZOLE LAUROXIL
     Indication: SCHIZOAFFECTIVE DISORDER
     Dosage: 1064 MILLIGRAM, QMO
     Route: 030
     Dates: start: 20200707
  5. ARISTADA [Suspect]
     Active Substance: ARIPIPRAZOLE LAUROXIL
     Dosage: 1064 MILLIGRAM, QMO
     Route: 030
     Dates: start: 201901, end: 201901
  6. ARISTADA [Suspect]
     Active Substance: ARIPIPRAZOLE LAUROXIL
     Dosage: 1064 MILLIGRAM, QMO
     Route: 030
     Dates: start: 20200609, end: 20200609
  7. ARISTADA [Suspect]
     Active Substance: ARIPIPRAZOLE LAUROXIL
     Dosage: 882 MILLIGRAM, QMO
     Route: 030
     Dates: start: 20181130, end: 20181130

REACTIONS (13)
  - Dysphonia [Unknown]
  - Product preparation error [Not Recovered/Not Resolved]
  - Slow response to stimuli [Unknown]
  - Lack of injection site rotation [Not Recovered/Not Resolved]
  - Needle issue [Not Recovered/Not Resolved]
  - Injection site erythema [Recovered/Resolved]
  - Injection site induration [Recovered/Resolved]
  - Injection site abscess [Unknown]
  - Off label use [Not Recovered/Not Resolved]
  - Inappropriate schedule of product administration [Not Recovered/Not Resolved]
  - Injection site pain [Recovered/Resolved]
  - Injection site warmth [Recovered/Resolved]
  - Condition aggravated [Unknown]

NARRATIVE: CASE EVENT DATE: 201811
